FAERS Safety Report 5859366-8 (Version None)
Quarter: 2008Q3

REPORT INFORMATION
  Report Type: 
  Country: None (occurrence: None)
  Receive Date: 20080826
  Receipt Date: 20080826
  Transmission Date: 20090109
  Serious: Yes (Hospitalization)
  Sender: FDA-Public Use
  Company Number: None

PATIENT
  Sex: Female
  Weight: 64 kg

DRUGS (8)
  1. CYTARABINE [Suspect]
     Dosage: 3400 MG
  2. ETOPOSIDE [Suspect]
     Dosage: 274 MG
  3. IFOSFAMIDE [Suspect]
     Dosage: 6850 MG
  4. LEUCOVORIN CALCIUM [Suspect]
     Dosage: 60 MG
  5. MESNA [Suspect]
     Dosage: 1725 MG
  6. METHOTREXATE [Suspect]
     Dosage: 2570 MG
  7. RITUXIMAB (MOAB C2B8 ANTI CD20, CHIMERIC) [Suspect]
     Dosage: 650 MG
  8. VINCRISTINE SULFATE [Suspect]
     Dosage: 2 MG

REACTIONS (9)
  - ABDOMINAL WALL INFECTION [None]
  - BACILLUS INFECTION [None]
  - DRUG HYPERSENSITIVITY [None]
  - NEUTROPENIA [None]
  - PSEUDOMONAS INFECTION [None]
  - SOFT TISSUE INFECTION [None]
  - SOFT TISSUE NECROSIS [None]
  - THROMBOCYTOPENIA [None]
  - WOUND INFECTION BACTERIAL [None]
